FAERS Safety Report 7612749-8 (Version None)
Quarter: 2011Q2

REPORT INFORMATION
  Report Type: 
  Country: None (occurrence: None)
  Receive Date: 20110629
  Receipt Date: 20110621
  Transmission Date: 20111010
  Serious: Yes (Death, Other)
  Sender: FDA-Public Use
  Company Number: THYM-1001215

PATIENT
  Age: 39 Year
  Sex: Male
  Weight: 63 kg

DRUGS (8)
  1. THYMOGLOBULIN [Suspect]
  2. METHYLPREDNISOLONE SODIUM SUCCINATE (METHYLPREDNISOLONE SOICUM SUCCINA [Concomitant]
  3. ACYCLOVIR [Concomitant]
  4. CORTICOSTEROIDS [Concomitant]
  5. VANCOMYCIN HYDROCHLORIDE [Concomitant]
  6. AMPHOTERICIN B [Concomitant]
  7. FILGRASTIM (FILGRASTIM) [Concomitant]
  8. THYMOGLOBULIN [Suspect]
     Indication: ACUTE GRAFT VERSUS HOST DISEASE
     Dosage: 75 MG, QD, INTRAVENOUS
     Route: 042
     Dates: start: 20090825, end: 20090829

REACTIONS (3)
  - SEPTIC SHOCK [None]
  - VENOOCCLUSIVE DISEASE [None]
  - GRAFT VERSUS HOST DISEASE [None]
